FAERS Safety Report 23556671 (Version 1)
Quarter: 2024Q1

REPORT INFORMATION
  Report Type: Spontaneous
  Country: KR (occurrence: KR)
  Receive Date: 20240223
  Receipt Date: 20240223
  Transmission Date: 20240410
  Serious: Yes (Hospitalization, Other)
  Sender: FDA-Public Use
  Company Number: KR-TWI PHARMACEUTICAL, INC-2024SCTW000025

PATIENT

DRUGS (3)
  1. NAPRELAN [Suspect]
     Active Substance: NAPROXEN SODIUM
     Indication: Pyrexia
     Dosage: 375 MG, BID
     Route: 065
  2. NAPRELAN [Suspect]
     Active Substance: NAPROXEN SODIUM
     Indication: Abdominal pain
  3. PIPERACILLIN AND TAZOBACTAM [Concomitant]
     Active Substance: PIPERACILLIN SODIUM\TAZOBACTAM SODIUM
     Indication: Product used for unknown indication
     Dosage: 4.5 GRAM
     Route: 042

REACTIONS (2)
  - Reye^s syndrome [Recovered/Resolved]
  - Serum ferritin increased [Unknown]
